FAERS Safety Report 6691905-X (Version None)
Quarter: 2010Q2

REPORT INFORMATION
  Report Type: 
  Country: None (occurrence: None)
  Receive Date: 20100422
  Receipt Date: 20091014
  Transmission Date: 20101027
  Serious: No
  Sender: FDA-Public Use
  Company Number: US-ASTRAZENECA-2009SE20148

PATIENT
  Age: 983 Month
  Sex: Female

DRUGS (4)
  1. TOPROL-XL [Suspect]
  2. PLAVIX [Suspect]
     Route: 048
     Dates: start: 20090701, end: 20090901
  3. VITAMIN B6 [Suspect]
     Route: 065
     Dates: end: 20090101
  4. VITAMIN B-12 [Suspect]
     Route: 065
     Dates: end: 20090101

REACTIONS (1)
  - ERYTHEMA [None]
